FAERS Safety Report 5846527-7 (Version None)
Quarter: 2008Q3

REPORT INFORMATION
  Report Type: 
  Country: None (occurrence: None)
  Receive Date: 20080815
  Receipt Date: 20080809
  Transmission Date: 20090109
  Serious: Yes (Other)
  Sender: FDA-Public Use
  Company Number: US-JNJCH-2008020892

PATIENT
  Sex: Female

DRUGS (1)
  1. BENADRYL ALLERGY QUICK DISSOLVE STRIPS [Suspect]
     Indication: HYPERSENSITIVITY
     Dosage: TEXT:UNSPECIFIED
     Route: 048

REACTIONS (1)
  - HYPERSENSITIVITY [None]
